FAERS Safety Report 8158632-3 (Version None)
Quarter: 2012Q1

REPORT INFORMATION
  Report Type: 
  Country: None (occurrence: None)
  Receive Date: 20120217
  Receipt Date: 20120203
  Transmission Date: 20120608
  Serious: Yes (Hospitalization, Other)
  Sender: FDA-Public Use
  Company Number: 2012P1003958

PATIENT
  Age: 61 Year
  Sex: Male
  Weight: 73.0291 kg

DRUGS (13)
  1. FENTANYL [Suspect]
  2. PRILOSEC [Concomitant]
  3. BOOST NUTRITIONAL FORMULA [Concomitant]
  4. FENTANYL [Suspect]
     Dosage: Q3D;TDER
     Route: 062
  5. CLINDAMYCIN [Concomitant]
  6. PROZAC [Concomitant]
  7. AMBIEN [Concomitant]
  8. MEGASE ES [Concomitant]
  9. FENTANYL-75 [Suspect]
     Indication: THROAT CANCER
     Dosage: 2 PATCHES;Q2D;TDER 1 PATCHES;Q3D;TDER
     Route: 062
     Dates: start: 20110606, end: 20111208
  10. FENTANYL-75 [Suspect]
     Indication: THROAT CANCER
     Dosage: 2 PATCHES;Q2D;TDER 1 PATCHES;Q3D;TDER
     Route: 062
     Dates: start: 20120107
  11. FENTANYL-100 [Suspect]
     Dosage: 1 PATCH;Q3D TDER
     Route: 062
     Dates: start: 20111212, end: 20120107
  12. ACYCLOVIR [Concomitant]
  13. FLUCONAZOLE [Concomitant]

REACTIONS (3)
  - HYPOTHYROIDISM [None]
  - HYPONATRAEMIA [None]
  - STUPOR [None]
